FAERS Safety Report 4503738-0 (Version None)
Quarter: 2004Q4

REPORT INFORMATION
  Report Type: 
  Country: None (occurrence: None)
  Receive Date: 20040928
  Receipt Date: 20040614
  Transmission Date: 20050328
  Serious: No
  Sender: FDA-Public Use
  Company Number: 04P-163-0263674-00

PATIENT
  Age: 46 Year
  Sex: Male
  Weight: 63.5036 kg

DRUGS (7)
  1. HUMIRA [Suspect]
     Indication: RHEUMATOID ARTHRITIS
     Dosage: 40 MG, 1 IN 2 WK, SUBCUTANEOUS
     Route: 058
     Dates: start: 20030601, end: 20040101
  2. SULFASALAZINE [Concomitant]
  3. BUCINDOLOL HYDROCHLORIDE [Concomitant]
  4. METHOTREXATE [Concomitant]
  5. OMEPRAZOLE [Concomitant]
  6. IRON [Concomitant]
  7. FOLIC ACID [Concomitant]

REACTIONS (3)
  - HERPES ZOSTER [None]
  - NASOPHARYNGITIS [None]
  - UVEITIS [None]
